FAERS Safety Report 8072247-7 (Version None)
Quarter: 2012Q1

REPORT INFORMATION
  Report Type: 
  Country: None (occurrence: None)
  Receive Date: 20120126
  Receipt Date: 20120120
  Transmission Date: 20120608
  Serious: No
  Sender: FDA-Public Use
  Company Number: US-PFIZER INC-US-WYE-H12287709

PATIENT
  Sex: Female

DRUGS (2)
  1. PRISTIQ [Suspect]
     Indication: DEPRESSION
     Dosage: 50 MG, 1X/DAY
     Route: 048
     Dates: start: 20091119
  2. ALPRAZOLAM [Suspect]
     Dosage: UNK AT BEDTIME

REACTIONS (3)
  - SOMNOLENCE [None]
  - MIDDLE INSOMNIA [None]
  - FATIGUE [None]
